FAERS Safety Report 10837809 (Version 2)
Quarter: 2015Q2

REPORT INFORMATION
  Report Type: Report from Study
  Country: US (occurrence: US)
  Receive Date: 20150219
  Receipt Date: 20150519
  Transmission Date: 20150821
  Serious: Yes (Hospitalization)
  Sender: FDA-Public Use
  Company Number: US-009507513-1502USA006013

PATIENT
  Age: 40 Year
  Sex: Female
  Weight: 51 kg

DRUGS (3)
  1. VORINOSTAT [Suspect]
     Active Substance: VORINOSTAT
     Indication: NIEMANN-PICK DISEASE
     Dosage: 200 MG, UNK
     Route: 048
  2. VORINOSTAT [Suspect]
     Active Substance: VORINOSTAT
     Dosage: 400 MG, UNK
     Dates: start: 20150508, end: 20150510
  3. VORINOSTAT [Suspect]
     Active Substance: VORINOSTAT
     Dosage: 200 MG, UNK
     Route: 048
     Dates: start: 20150208

REACTIONS (4)
  - Urine output decreased [Unknown]
  - Vomiting [Recovered/Resolved]
  - Lethargy [Unknown]
  - Vomiting [Recovered/Resolved]

NARRATIVE: CASE EVENT DATE: 20150208
